FAERS Safety Report 4879296-8 (Version None)
Quarter: 2006Q1

REPORT INFORMATION
  Report Type: 
  Country: None (occurrence: None)
  Receive Date: 20060112
  Receipt Date: 20050421
  Transmission Date: 20060701
  Serious: Yes (Hospitalization)
  Sender: FDA-Public Use
  Company Number: US-MERCK-0504USA04475

PATIENT
  Age: 78 Year
  Sex: Female
  Weight: 56 kg

DRUGS (5)
  1. VIOXX [Suspect]
     Indication: ARTHRALGIA
     Route: 048
     Dates: start: 19990101, end: 20020801
  2. PREMARIN [Concomitant]
     Route: 065
  3. FOSAMAX [Concomitant]
     Route: 048
  4. DARVOCET-N 50 [Concomitant]
     Route: 065
  5. FLEXERIL [Concomitant]
     Route: 048

REACTIONS (16)
  - ALOPECIA [None]
  - AMNESIA [None]
  - BLOOD PRESSURE INADEQUATELY CONTROLLED [None]
  - CEREBRAL INFARCTION [None]
  - CHEST PAIN [None]
  - CHONDROCALCINOSIS [None]
  - COGNITIVE DISORDER [None]
  - DEHYDRATION [None]
  - DEMENTIA [None]
  - HYPERTENSION [None]
  - JOINT SWELLING [None]
  - MECHANICAL COMPLICATION OF IMPLANT [None]
  - NECK PAIN [None]
  - ROAD TRAFFIC ACCIDENT [None]
  - SLEEP DISORDER [None]
  - SPINAL OSTEOARTHRITIS [None]
